FAERS Safety Report 8777461 (Version 1)
Quarter: 2012Q4

REPORT INFORMATION
  Report Type: 
  Country: FR (occurrence: FR)
  Receive Date: 20120911
  Receipt Date: 20120911
  Transmission Date: 20130627
  Serious: Yes (Other)
  Sender: FDA-Public Use
  Company Number: FR-UCBSA-065106

PATIENT
  Sex: Male

DRUGS (1)
  1. CIMZIA [Suspect]
     Indication: RHEUMATOID ARTHRITIS
     Dosage: 50 MG

REACTIONS (3)
  - Cellulitis gangrenous [Unknown]
  - Renal disorder [Unknown]
  - Disseminated intravascular coagulation [Unknown]
